FAERS Safety Report 8073622-7 (Version None)
Quarter: 2012Q1

REPORT INFORMATION
  Report Type: 
  Country: None (occurrence: None)
  Receive Date: 20120119
  Receipt Date: 20120106
  Transmission Date: 20120608
  Serious: Yes (Other)
  Sender: FDA-Public Use
  Company Number: AUR-APL-2012-00461

PATIENT
  Age: 73 Year
  Sex: Female

DRUGS (1)
  1. METFORMIN HCL [Suspect]
     Indication: PRODUCT USED FOR UNKNOWN INDICATION
     Dosage: (1000 MG, 1 D),

REACTIONS (4)
  - LACTIC ACIDOSIS [None]
  - HAEMODIALYSIS [None]
  - RENAL IMPAIRMENT [None]
  - AMYLASE INCREASED [None]
